FAERS Safety Report 10572793 (Version 1)
Quarter: 2014Q4

REPORT INFORMATION
  Report Type: Spontaneous
  Country: US (occurrence: None)
  Receive Date: 20141107
  Receipt Date: 20141107
  Transmission Date: 20150529
  Serious: Yes (Other)
  Sender: FDA-Public Use
  Company Number: None

PATIENT
  Age: 65 Year
  Sex: Male
  Weight: 77.11 kg

DRUGS (1)
  1. SYNTHROID [Suspect]
     Active Substance: LEVOTHYROXINE SODIUM
     Indication: THYROIDECTOMY
     Dosage: ONE 150 TABLET?ONCE DAILY?TAKEN BY MOUTH
     Route: 048
     Dates: start: 20140903, end: 20141103

REACTIONS (2)
  - Hypothyroidism [None]
  - Product quality issue [None]

NARRATIVE: CASE EVENT DATE: 20141103
